FAERS Safety Report 6382935-6 (Version None)
Quarter: 2009Q3

REPORT INFORMATION
  Report Type: 
  Country: None (occurrence: None)
  Receive Date: 20090930
  Receipt Date: 20090916
  Transmission Date: 20100115
  Serious: Yes (Hospitalization)
  Sender: FDA-Public Use
  Company Number: AU-PFIZER INC-2009270060

PATIENT

DRUGS (1)
  1. CHAMPIX [Suspect]
     Indication: SMOKING CESSATION THERAPY
     Dosage: UNK MG, UNK

REACTIONS (6)
  - ANGER [None]
  - DISORIENTATION [None]
  - DRY MOUTH [None]
  - MOOD ALTERED [None]
  - RASH [None]
  - SALIVARY HYPERSECRETION [None]
